FAERS Safety Report 17338317 (Version 1)
Quarter: 2020Q1

REPORT INFORMATION
  Report Type: Spontaneous
  Country: US (occurrence: US)
  Receive Date: 20200128
  Receipt Date: 20200128
  Transmission Date: 20200409
  Serious: No
  Sender: FDA-Public Use
  Company Number: None

PATIENT
  Age: 42 Year
  Sex: Female
  Weight: 94.5 kg

DRUGS (1)
  1. XOFLUZA [Suspect]
     Active Substance: BALOXAVIR MARBOXIL
     Indication: INFLUENZA

REACTIONS (4)
  - Hypoaesthesia [None]
  - Cough [None]
  - Hypoaesthesia oral [None]
  - Depressed level of consciousness [None]

NARRATIVE: CASE EVENT DATE: 20200127
